FAERS Safety Report 4582728-6 (Version None)
Quarter: 2005Q1

REPORT INFORMATION
  Report Type: 
  Country: None (occurrence: None)
  Receive Date: 20050215
  Receipt Date: 20000727
  Transmission Date: 20050727
  Serious: Yes (Other)
  Sender: FDA-Public Use
  Company Number: US-GLAXOSMITHKLINE-A0334288A

PATIENT
  Age: 26 Year
  Sex: Female
  Weight: 58.96 kg

DRUGS (9)
  1. PAXIL [Suspect]
     Indication: DEPRESSION
     Dosage: 50MG PER DAY
     Route: 048
     Dates: start: 19980801, end: 20000601
  2. PAXIL [Suspect]
     Dosage: 60MG PER DAY
     Route: 048
     Dates: start: 19980801, end: 20000601
  3. PAXIL [Suspect]
     Dosage: 40MG PER DAY
     Route: 048
     Dates: start: 20000717, end: 20000719
  4. PAXIL [Suspect]
     Dosage: 30MG PER DAY
     Route: 048
     Dates: start: 20000701, end: 20000701
  5. PAXIL [Suspect]
     Dosage: 20MG PER DAY
     Route: 048
     Dates: start: 20000701, end: 20000701
  6. PAXIL [Suspect]
     Dosage: 10MG PER DAY
     Route: 048
     Dates: start: 20000701, end: 20000806
  7. TRAZODONE [Concomitant]
     Dates: end: 19981101
  8. DEPAKOTE [Concomitant]
     Dates: end: 20000601
  9. ALPRAZOLAM [Concomitant]
     Dates: end: 19990201

REACTIONS (16)
  - ABNORMAL DREAMS [None]
  - CHILLS [None]
  - DIZZINESS [None]
  - DRUG WITHDRAWAL SYNDROME [None]
  - HOT FLUSH [None]
  - INCREASED APPETITE [None]
  - IRRITABILITY [None]
  - MUSCLE SPASMS [None]
  - MUSCLE TWITCHING [None]
  - NAUSEA [None]
  - SUICIDAL IDEATION [None]
  - TIC [None]
  - TREATMENT NONCOMPLIANCE [None]
  - TREMOR [None]
  - VOMITING [None]
  - WEIGHT INCREASED [None]
